FAERS Safety Report 7572260-X (Version None)
Quarter: 2011Q2

REPORT INFORMATION
  Report Type: 
  Country: None (occurrence: None)
  Receive Date: 20110624
  Receipt Date: 20110613
  Transmission Date: 20111010
  Serious: Yes (Other)
  Sender: FDA-Public Use
  Company Number: PHHY2011US52122

PATIENT
  Sex: Female

DRUGS (3)
  1. TASIGNA [Suspect]
     Indication: CHRONIC MYELOID LEUKAEMIA
     Dosage: 400 MG, BID
     Route: 048
     Dates: start: 20110401, end: 20110525
  2. TASIGNA [Suspect]
     Dosage: 200 MG, BID
     Route: 048
     Dates: start: 20110501
  3. ALBUTEROL SULFATE AUTOHALER [Concomitant]
     Indication: ASTHMA

REACTIONS (7)
  - ASTHENIA [None]
  - MYALGIA [None]
  - ARTHRALGIA [None]
  - CHRONIC MYELOID LEUKAEMIA [None]
  - ALOPECIA [None]
  - ABASIA [None]
  - PAIN IN EXTREMITY [None]
